FAERS Safety Report 17401640 (Version 3)
Quarter: 2020Q1

REPORT INFORMATION
  Report Type: Spontaneous
  Country: US (occurrence: US)
  Receive Date: 20200211
  Receipt Date: 20200316
  Transmission Date: 20200409
  Serious: Yes (Other)
  Sender: FDA-Public Use
  Company Number: US-AKORN PHARMACEUTICALS-2020AKN00156

PATIENT
  Age: 18 Year
  Sex: Male
  Weight: 65.76 kg

DRUGS (1)
  1. MYORISAN [Suspect]
     Active Substance: ISOTRETINOIN
     Indication: ACNE
     Dosage: 40 MG, 1X/DAY
     Route: 048
     Dates: start: 20200125

REACTIONS (13)
  - Off label use [Unknown]
  - Libido disorder [Unknown]
  - Mental disorder [Unknown]
  - Dehydration [Unknown]
  - Oropharyngeal pain [Unknown]
  - Asthenia [Unknown]
  - Erectile dysfunction [Unknown]
  - Mood altered [Unknown]
  - Feeling abnormal [Unknown]
  - Energy increased [Unknown]
  - Visual impairment [Unknown]
  - Ejaculation failure [Unknown]
  - Nausea [Unknown]

NARRATIVE: CASE EVENT DATE: 202001
